FAERS Safety Report 18032920 (Version 2)
Quarter: 2020Q3

REPORT INFORMATION
  Report Type: Spontaneous
  Country: US (occurrence: US)
  Receive Date: 20200716
  Receipt Date: 20200915
  Transmission Date: 20201103
  Serious: No
  Sender: FDA-Public Use
  Company Number: US-SA-2020SA178804

PATIENT

DRUGS (3)
  1. CEPHALEXINE [Concomitant]
     Active Substance: CEPHALEXIN
  2. DUPIXENT [Suspect]
     Active Substance: DUPILUMAB
     Indication: DERMATITIS ATOPIC
     Dosage: 300 MG, QOW
     Route: 058
     Dates: start: 20200501
  3. TRIAMCINOLONE ACETONIDE. [Concomitant]
     Active Substance: TRIAMCINOLONE ACETONIDE

REACTIONS (5)
  - Eczema [Recovering/Resolving]
  - Pruritus [Recovering/Resolving]
  - Rash macular [Recovering/Resolving]
  - Dry skin [Recovering/Resolving]
  - Skin swelling [Recovering/Resolving]

NARRATIVE: CASE EVENT DATE: 2020
